FAERS Safety Report 18523513 (Version 1)
Quarter: 2020Q4

REPORT INFORMATION
  Report Type: Spontaneous
  Country: US (occurrence: US)
  Receive Date: 20201119
  Receipt Date: 20201119
  Transmission Date: 20210114
  Serious: Yes (Hospitalization, Disabling, Other)
  Sender: FDA-Public Use
  Company Number: US-PURDUE-USA-2020-0164568

PATIENT
  Sex: Male

DRUGS (1)
  1. OXYCONTIN [Suspect]
     Active Substance: OXYCODONE HYDROCHLORIDE
     Indication: BACK PAIN
     Dosage: UNK
     Route: 048

REACTIONS (9)
  - Hospitalisation [Unknown]
  - Unevaluable event [Unknown]
  - Drug abuse [Unknown]
  - Emotional distress [Unknown]
  - Pain [Unknown]
  - Product prescribing issue [Unknown]
  - Disturbance in attention [Unknown]
  - Feeling of despair [Unknown]
  - Drug dependence [Unknown]
